FAERS Safety Report 18263467 (Version 1)
Quarter: 2020Q3

REPORT INFORMATION
  Report Type: Spontaneous
  Country: CN (occurrence: CN)
  Receive Date: 20200914
  Receipt Date: 20200914
  Transmission Date: 20201103
  Serious: Yes (Life-Threatening, Hospitalization)
  Sender: FDA-Public Use
  Company Number: CN-BAYER-2020-196896

PATIENT
  Age: 62 Year
  Sex: Male
  Weight: 60 kg

DRUGS (4)
  1. GLIMEPIRIDE. [Interacting]
     Active Substance: GLIMEPIRIDE
     Indication: TYPE 2 DIABETES MELLITUS
     Dosage: 6 MG, QD
     Route: 048
     Dates: start: 20200711, end: 20200716
  2. TRAJENTA [Interacting]
     Active Substance: LINAGLIPTIN
     Indication: TYPE 2 DIABETES MELLITUS
     Dosage: 5 MG, QD
     Route: 048
     Dates: start: 20200711, end: 20200716
  3. ROSIGLITAZONE SODIUM [Interacting]
     Active Substance: ROSIGLITAZONE
     Indication: TYPE 2 DIABETES MELLITUS
     Dosage: 4 MG, QD
     Route: 048
     Dates: start: 20200711, end: 20200716
  4. GLUCOBAY [Suspect]
     Active Substance: ACARBOSE
     Indication: TYPE 2 DIABETES MELLITUS
     Dosage: 0.1 G, TID
     Route: 048
     Dates: start: 20200711, end: 20200716

REACTIONS (4)
  - Hypoglycaemic coma [Recovered/Resolved]
  - Drug interaction [None]
  - Coma [Recovered/Resolved]
  - Verbigeration [Recovered/Resolved]

NARRATIVE: CASE EVENT DATE: 20200716
